FAERS Safety Report 5090953-3 (Version None)
Quarter: 2006Q3

REPORT INFORMATION
  Report Type: 
  Country: None (occurrence: None)
  Receive Date: 20060823
  Receipt Date: 20060814
  Transmission Date: 20061208
  Serious: Yes (Hospitalization)
  Sender: FDA-Public Use
  Company Number: 228696

PATIENT
  Age: 55 Year
  Sex: Male
  Weight: 77 kg

DRUGS (3)
  1. AVASTIN [Suspect]
     Indication: BLADDER CANCER
     Dosage: 15 MG/KG, IV DRIP
     Route: 041
     Dates: start: 20060505
  2. CISPLATIN [Suspect]
     Indication: BLADDER CANCER
     Dosage: 70 MG/M2, IV DRIP
     Route: 041
     Dates: start: 20060505
  3. GEMCITABINE [Suspect]
     Indication: BLADDER CANCER
     Dosage: 1250 MG/M2, IV DRIP
     Route: 041
     Dates: start: 20060505

REACTIONS (5)
  - BACTERIA BLOOD IDENTIFIED [None]
  - CULTURE URINE POSITIVE [None]
  - INFECTION [None]
  - INFLUENZA LIKE ILLNESS [None]
  - STAPHYLOCOCCAL INFECTION [None]
